FAERS Safety Report 9890052 (Version 1)
Quarter: 2014Q1

REPORT INFORMATION
  Report Type: Spontaneous
  Country: US (occurrence: US)
  Receive Date: 20140212
  Receipt Date: 20140212
  Transmission Date: 20141002
  Serious: No
  Sender: FDA-Public Use
  Company Number: US-BIOGENIDEC-2014BI011027

PATIENT
  Age: 53 Year
  Sex: Female

DRUGS (7)
  1. TECFIDERA [Suspect]
     Indication: MULTIPLE SCLEROSIS
     Route: 048
  2. ASPIRIN ADULT LOW STRENGTH [Concomitant]
  3. BACLOFEN [Concomitant]
  4. CALCIUM + D3 [Concomitant]
  5. DAILY VALUE MULTIVITAMIN [Concomitant]
  6. NITROFURANTOIN MACROCRYSTAL [Concomitant]
  7. TYLENOL PM EXTRA STRENGTH [Concomitant]

REACTIONS (1)
  - Alopecia [Unknown]
